FAERS Safety Report 11822363 (Version 2)
Quarter: 2016Q1

REPORT INFORMATION
  Report Type: Spontaneous
  Country: US (occurrence: US)
  Receive Date: 20151210
  Receipt Date: 20160202
  Transmission Date: 20160525
  Serious: No
  Sender: FDA-Public Use
  Company Number: US-JNJFOC-20150809626

PATIENT
  Age: 61 Year
  Sex: Female

DRUGS (6)
  1. BENADRYL [Concomitant]
     Active Substance: DIPHENHYDRAMINE HYDROCHLORIDE
  2. VALSARTAN. [Concomitant]
     Active Substance: VALSARTAN
  3. MULTIVITAMINS [Concomitant]
     Active Substance: VITAMINS
  4. IMBRUVICA [Suspect]
     Active Substance: IBRUTINIB
     Indication: CHRONIC LYMPHOCYTIC LEUKAEMIA
     Route: 048
     Dates: start: 20150706
  5. ACYCLOVIR. [Concomitant]
     Active Substance: ACYCLOVIR
  6. ATENOLOL. [Concomitant]
     Active Substance: ATENOLOL

REACTIONS (13)
  - Seizure [Recovered/Resolved]
  - Pain [Recovered/Resolved]
  - Upper respiratory tract infection [Recovered/Resolved]
  - Nausea [Not Recovered/Not Resolved]
  - Dysphonia [Unknown]
  - Oral herpes [Recovered/Resolved]
  - Fatigue [Recovered/Resolved]
  - Pyrexia [Recovered/Resolved]
  - Reading disorder [Not Recovered/Not Resolved]
  - Hordeolum [Recovered/Resolved]
  - Motion sickness [Not Recovered/Not Resolved]
  - Decreased appetite [Not Recovered/Not Resolved]
  - Myalgia [Not Recovered/Not Resolved]

NARRATIVE: CASE EVENT DATE: 2015
